FAERS Safety Report 14912977 (Version 1)
Quarter: 2018Q2

REPORT INFORMATION
  Report Type: Spontaneous
  Country: US (occurrence: US)
  Receive Date: 20180501
  Receipt Date: 20180501
  Transmission Date: 20180711
  Serious: No
  Sender: FDA-Public Use
  Company Number: None

PATIENT
  Age: 49 Year
  Sex: Female
  Weight: 65.25 kg

DRUGS (1)
  1. ZOLPIDEM TARTRATE 10MG [Suspect]
     Active Substance: ZOLPIDEM TARTRATE
     Indication: INSOMNIA
     Route: 048
     Dates: start: 20170917, end: 20180131

REACTIONS (5)
  - Agitation [None]
  - Product substitution issue [None]
  - Restlessness [None]
  - Drug ineffective [None]
  - Restless legs syndrome [None]

NARRATIVE: CASE EVENT DATE: 20180131
